FAERS Safety Report 6792562-4 (Version None)
Quarter: 2010Q2

REPORT INFORMATION
  Report Type: 
  Country: None (occurrence: None)
  Receive Date: 20100624
  Receipt Date: 20080822
  Transmission Date: 20101027
  Serious: No
  Sender: FDA-Public Use
  Company Number: US-PFIZER INC-2008071395

PATIENT
  Sex: Male
  Weight: 80 kg

DRUGS (3)
  1. GEODON [Suspect]
     Indication: AFFECTIVE DISORDER
     Dates: start: 20070101
  2. LITHIUM [Concomitant]
  3. WELLBUTRIN [Concomitant]

REACTIONS (1)
  - INSOMNIA [None]
